FAERS Safety Report 7294052-1 (Version None)
Quarter: 2011Q1

REPORT INFORMATION
  Report Type: 
  Country: None (occurrence: None)
  Receive Date: 20110215
  Receipt Date: 20110208
  Transmission Date: 20110831
  Serious: Yes (Death, Congenital Anomaly, Other)
  Sender: FDA-Public Use
  Company Number: FR-ABBOTT-10P-056-0672593-00

PATIENT
  Sex: Male

DRUGS (3)
  1. DEPAKOTE [Suspect]
     Indication: DRUG EXPOSURE DURING PREGNANCY
     Route: 064
  2. TERALITHE [Suspect]
     Indication: DRUG EXPOSURE DURING PREGNANCY
     Route: 064
  3. ZYPREXA [Suspect]
     Indication: DRUG EXPOSURE DURING PREGNANCY
     Route: 064

REACTIONS (9)
  - HYGROMA COLLI [None]
  - DRUG EXPOSURE DURING PREGNANCY [None]
  - ABORTION INDUCED [None]
  - DYSMORPHISM [None]
  - MATERNAL DRUGS AFFECTING FOETUS [None]
  - CONGENITAL CYSTIC KIDNEY DISEASE [None]
  - RENAL DYSPLASIA [None]
  - GENERALISED OEDEMA [None]
  - ABDOMINAL DISTENSION [None]
